FAERS Safety Report 8296301-X (Version None)
Quarter: 2012Q2

REPORT INFORMATION
  Report Type: 
  Country: None (occurrence: None)
  Receive Date: 20120418
  Receipt Date: 20120412
  Transmission Date: 20120825
  Serious: Yes (Hospitalization)
  Sender: FDA-Public Use
  Company Number: JP-FRI-1000027565

PATIENT
  Sex: Female

DRUGS (9)
  1. SYMMETREL [Suspect]
     Indication: CEREBRAL INFARCTION
     Dosage: 100 MG
     Route: 048
     Dates: start: 20110609, end: 20110622
  2. MEMANTINE HCL [Suspect]
     Indication: DEMENTIA ALZHEIMER'S TYPE
     Dosage: 5 MG
     Route: 048
     Dates: start: 20110721, end: 20110727
  3. MEMANTINE HCL [Suspect]
     Dosage: 10 MG
     Route: 048
     Dates: start: 20110728, end: 20110803
  4. MEMANTINE HCL [Suspect]
     Dosage: 15 MG
     Route: 048
     Dates: start: 20110804, end: 20110810
  5. MEMANTINE HCL [Suspect]
     Dosage: 20 MG
     Route: 048
     Dates: start: 20110811, end: 20111118
  6. SYMMETREL [Suspect]
     Dosage: 50 MG
     Route: 048
     Dates: start: 20110623, end: 20111026
  7. SYMMETREL [Suspect]
     Dosage: 100 MG
     Route: 048
     Dates: start: 20111027
  8. ROZEREM [Concomitant]
     Dosage: 8 MG
     Dates: end: 20110915
  9. ARICEPT [Concomitant]
     Indication: DEMENTIA ALZHEIMER'S TYPE
     Dosage: 5 MG
     Route: 048

REACTIONS (2)
  - CONVULSION [None]
  - ALTERED STATE OF CONSCIOUSNESS [None]
